FAERS Safety Report 9133530 (Version 1)
Quarter: 2013Q1

REPORT INFORMATION
  Report Type: Spontaneous
  Country: US (occurrence: US)
  Receive Date: 20130124
  Receipt Date: 20130124
  Transmission Date: 20140127
  Serious: Yes (Life-Threatening, Hospitalization)
  Sender: FDA-Public Use
  Company Number: US-BRACCO-007522

PATIENT
  Age: 34 Year
  Sex: Female
  Weight: 76 kg

DRUGS (9)
  1. TRAMADOL [Concomitant]
  2. MULTIHANCE [Suspect]
     Indication: NUCLEAR MAGNETIC RESONANCE IMAGING BRAIN
     Route: 042
     Dates: start: 20120130, end: 20120130
  3. MULTIHANCE [Suspect]
     Indication: MIGRAINE
     Route: 042
     Dates: start: 20120130, end: 20120130
  4. ADVAIR [Concomitant]
  5. OMNARIS [Concomitant]
  6. CYMBALTA [Concomitant]
  7. FLEXERIL [Concomitant]
  8. BENADRYL [Concomitant]
  9. ATIVAN [Concomitant]
     Dosage: AS NEEDED (PRN)

REACTIONS (2)
  - Convulsion [Unknown]
  - Nausea [Unknown]
